FAERS Safety Report 25933711 (Version 1)
Quarter: 2025Q4

REPORT INFORMATION
  Report Type: Spontaneous
  Country: EU (occurrence: EU)
  Receive Date: 20251017
  Receipt Date: 20251017
  Transmission Date: 20260117
  Serious: Yes (Life-Threatening)
  Sender: ACCORD
  Company Number: None

PATIENT
  Age: 50 Year
  Sex: Male

DRUGS (5)
  1. OXALIPLATIN [Suspect]
     Active Substance: OXALIPLATIN
     Indication: Rectal adenocarcinoma
     Dosage: 250 MG, INFUSION OVER 180 MINUTES, AND IN 21/21 DAY CYCLES
     Dates: start: 20250909, end: 20250909
  2. DEXAMETHASONE [Concomitant]
     Active Substance: DEXAMETHASONE
     Dosage: 12 MG PO
  3. GRANISETRON [Concomitant]
     Active Substance: GRANISETRON
     Dosage: 1MG IV
  4. APREPITANT [Concomitant]
     Active Substance: APREPITANT
     Dosage: 125 MG PO
  5. CAPECITABINE [Concomitant]
     Active Substance: CAPECITABINE
     Dosage: 1800 MG PO 12/12 HOURS FOR 14 DAYS

REACTIONS (10)
  - Pharyngeal paraesthesia [Recovered/Resolved]
  - Paraesthesia [Recovered/Resolved]
  - Malaise [Recovered/Resolved]
  - Nausea [Recovered/Resolved]
  - Suprapubic pain [Recovered/Resolved]
  - Hypotension [Recovered/Resolved]
  - Bradycardia [Recovered/Resolved]
  - Dyspnoea [Recovered/Resolved]
  - Chest discomfort [Recovered/Resolved]
  - Tongue oedema [Recovered/Resolved]

NARRATIVE: CASE EVENT DATE: 20250909
